FAERS Safety Report 8360492-2 (Version None)
Quarter: 2012Q1

REPORT INFORMATION
  Report Type: 
  Country: None (occurrence: None)
  Receive Date: 20120323
  Receipt Date: 20110325
  Transmission Date: 20120608
  Serious: Yes (Hospitalization, Other)
  Sender: FDA-Public Use
  Company Number: 163-21880-11012104

PATIENT
  Age: 71 Year
  Sex: Female

DRUGS (6)
  1. LOZOL (INDAPAMIDE) (UNKNOWN) [Concomitant]
  2. DIFLUCAN [Concomitant]
  3. REVLIMID [Suspect]
     Indication: CHRONIC LYMPHOCYTIC LEUKAEMIA
     Dosage: 5 MG, 1 IN 1 D, PO   2.5 MG, 1 IN 2 D, PO   5 MG, 1 IN 1 D, PO
     Route: 048
     Dates: start: 20100908, end: 20101216
  4. REVLIMID [Suspect]
     Indication: CHRONIC LYMPHOCYTIC LEUKAEMIA
     Dosage: 5 MG, 1 IN 1 D, PO   2.5 MG, 1 IN 2 D, PO   5 MG, 1 IN 1 D, PO
     Route: 048
     Dates: start: 20110101
  5. REVLIMID [Suspect]
     Indication: CHRONIC LYMPHOCYTIC LEUKAEMIA
     Dosage: 5 MG, 1 IN 1 D, PO   2.5 MG, 1 IN 2 D, PO   5 MG, 1 IN 1 D, PO
     Route: 048
     Dates: start: 20110106
  6. HYTRIN [Concomitant]

REACTIONS (3)
  - PYREXIA [None]
  - PANCYTOPENIA [None]
  - FULL BLOOD COUNT DECREASED [None]
